FAERS Safety Report 5941877-8 (Version None)
Quarter: 2008Q4

REPORT INFORMATION
  Report Type: 
  Country: None (occurrence: None)
  Receive Date: 20081105
  Receipt Date: 20081031
  Transmission Date: 20090506
  Serious: Yes (Hospitalization)
  Sender: FDA-Public Use
  Company Number: FR-WYE-G02486008

PATIENT
  Sex: Male

DRUGS (1)
  1. ADVIL [Suspect]
     Indication: TOOTH DISORDER
     Route: 048
     Dates: start: 20080905, end: 20080910

REACTIONS (3)
  - JOINT SWELLING [None]
  - LEUKOCYTOCLASTIC VASCULITIS [None]
  - RASH ERYTHEMATOUS [None]
